FAERS Safety Report 7517211-9 (Version None)
Quarter: 2011Q2

REPORT INFORMATION
  Report Type: 
  Country: None (occurrence: None)
  Receive Date: 20110601
  Receipt Date: 20110525
  Transmission Date: 20111010
  Serious: Yes (Hospitalization)
  Sender: FDA-Public Use
  Company Number: DE-ABBOTT-11P-062-0728857-00

PATIENT
  Age: 47 Year
  Sex: Female

DRUGS (1)
  1. VALPROATE SODIUM [Suspect]
     Indication: EPILEPSY
     Route: 048
     Dates: end: 20110501

REACTIONS (3)
  - ENCEPHALITIS [None]
  - CONDITION AGGRAVATED [None]
  - SOMNOLENCE [None]
